FAERS Safety Report 18706713 (Version 1)
Quarter: 2021Q1

REPORT INFORMATION
  Report Type: Spontaneous
  Country: IT (occurrence: IT)
  Receive Date: 20210106
  Receipt Date: 20210106
  Transmission Date: 20210419
  Serious: Yes (Other)
  Sender: FDA-Public Use
  Company Number: NVSC2021IT001574

PATIENT
  Age: 41 Year
  Sex: Female

DRUGS (2)
  1. OXALIPLATIN. [Suspect]
     Active Substance: OXALIPLATIN
     Indication: CYSTADENOCARCINOMA PANCREAS
     Dosage: `100 MG/M2/D2, Q2W (12 CYCLES)
     Route: 065
     Dates: start: 200812
  2. GEMCITABINE. [Suspect]
     Active Substance: GEMCITABINE
     Indication: CYSTADENOCARCINOMA PANCREAS
     Dosage: 1000 MG/M2/D1, Q2W (12 CYCLES)
     Route: 065
     Dates: start: 200812

REACTIONS (3)
  - Cystadenocarcinoma pancreas [Unknown]
  - Therapy partial responder [Unknown]
  - Product use in unapproved indication [Unknown]

NARRATIVE: CASE EVENT DATE: 201109
